FAERS Safety Report 10523936 (Version 4)
Quarter: 2018Q1

REPORT INFORMATION
  Report Type: Report from Study
  Country: US (occurrence: US)
  Receive Date: 20141017
  Receipt Date: 20180326
  Transmission Date: 20180508
  Serious: Yes (Death, Other)
  Sender: FDA-Public Use
  Company Number: US-ROCHE-1473543

PATIENT

DRUGS (2)
  1. RITUXIMAB. [Suspect]
     Active Substance: RITUXIMAB
     Indication: B-CELL LYMPHOMA
     Dosage: INDUCTION THERAPY- 4 DOSES
     Route: 042
  2. RITUXIMAB. [Suspect]
     Active Substance: RITUXIMAB
     Dosage: MAINTENANCE RITUXIMAB OR RE-TREATMENT RITUXIMAB
     Route: 042

REACTIONS (21)
  - Progressive multifocal leukoencephalopathy [Fatal]
  - Neutropenia [Unknown]
  - Insomnia [Unknown]
  - Back pain [Unknown]
  - Fatigue [Unknown]
  - Laryngeal pain [Unknown]
  - Rash [Unknown]
  - Neuralgia [Unknown]
  - Pyrexia [Unknown]
  - Chronic lymphocytic leukaemia [Unknown]
  - Ventricular arrhythmia [Unknown]
  - Hypertension [Unknown]
  - Syncope [Unknown]
  - Dyspnoea [Unknown]
  - Acute myeloid leukaemia [Unknown]
  - Neoplasm malignant [Unknown]
  - Infection [Unknown]
  - Thrombocytopenia [Unknown]
  - Deafness [Unknown]
  - Asthenia [Unknown]
  - Cytokine release syndrome [Unknown]
